APPROVED DRUG PRODUCT: ACETAZOLAMIDE SODIUM
Active Ingredient: ACETAZOLAMIDE SODIUM
Strength: EQ 500MG BASE/VIAL
Dosage Form/Route: INJECTABLE;INJECTION
Application: A205358 | Product #001
Applicant: PH HEALTH LTD
Approved: Jun 20, 2017 | RLD: No | RS: No | Type: DISCN